FAERS Safety Report 7063612-5 (Version None)
Quarter: 2010Q4

REPORT INFORMATION
  Report Type: 
  Country: None (occurrence: None)
  Receive Date: 20101026
  Receipt Date: 20100802
  Transmission Date: 20110411
  Serious: No
  Sender: FDA-Public Use
  Company Number: US-ABBOTT-10P-163-0662407-00

PATIENT
  Sex: Female

DRUGS (3)
  1. LUPRON DEPOT [Suspect]
     Indication: MENSTRUAL CYCLE MANAGEMENT
     Route: 050
     Dates: start: 20100101, end: 20100603
  2. LUPRON DEPOT [Suspect]
     Indication: FLUID RETENTION
     Route: 050
     Dates: start: 20100603
  3. COREG [Concomitant]
     Indication: HEART DISEASE CONGENITAL

REACTIONS (1)
  - BLOOD CREATINE PHOSPHOKINASE INCREASED [None]
